FAERS Safety Report 9163723 (Version 1)
Quarter: 2012Q4

REPORT INFORMATION
  Report Type: 
  Country: US (occurrence: US)
  Receive Date: 20121206
  Receipt Date: 20121206
  Transmission Date: 20130627
  Serious: Yes (Other)
  Sender: FDA-Public Use
  Company Number: US-RB-047384-12

PATIENT
  Age: 64 Year
  Sex: Female

DRUGS (4)
  1. MUCINEX DM MAXIMUM STRENGTH (GUAIFENESIN) [Suspect]
     Indication: PRODUCT USED FOR UNKNOWN INDICATION
     Dosage: Withdrawn on 26-NOV-2012
     Route: 048
     Dates: start: 20121124
  2. MUCINEX DM (DEXTROMETHORPHAN HYDROBROMIDE) [Suspect]
  3. METOPROLOL [Concomitant]
     Indication: HYPERTENSION
  4. VERAMYST [Concomitant]
     Indication: PRODUCT USED FOR UNKNOWN INDICATION
     Route: 045

REACTIONS (9)
  - Blood pressure increased [Not Recovered/Not Resolved]
  - Hyperventilation [Unknown]
  - Panic attack [Unknown]
  - Dyspnoea [Unknown]
  - Nervousness [Unknown]
  - Dry mouth [Unknown]
  - Headache [Unknown]
  - Dizziness [Unknown]
  - Abdominal pain upper [Unknown]
